FAERS Safety Report 9820510 (Version 2)
Quarter: 2014Q1

REPORT INFORMATION
  Report Type: Spontaneous
  Country: IT (occurrence: IT)
  Receive Date: 20140116
  Receipt Date: 20140207
  Transmission Date: 20141002
  Serious: Yes (Other)
  Sender: FDA-Public Use
  Company Number: IT-PFIZER INC-2014011039

PATIENT
  Sex: Male

DRUGS (1)
  1. ALFUZOSIN [Suspect]
     Dosage: UNK

REACTIONS (2)
  - Syncope [Recovering/Resolving]
  - Bradyarrhythmia [Recovering/Resolving]
